FAERS Safety Report 5262770-2 (Version None)
Quarter: 2007Q1

REPORT INFORMATION
  Report Type: 
  Country: None (occurrence: None)
  Receive Date: 20070312
  Receipt Date: 20070307
  Transmission Date: 20070707
  Serious: Yes (Other)
  Sender: FDA-Public Use
  Company Number: US-GLAXOSMITHKLINE-A0642210A

PATIENT
  Age: 29 Year
  Sex: Female

DRUGS (2)
  1. ARIXTRA [Suspect]
     Indication: PORTAL VEIN THROMBOSIS
     Dosage: 7.5MG PER DAY
     Route: 058
     Dates: start: 20060809
  2. NO CONCURRENT MEDICATION [Concomitant]

REACTIONS (2)
  - BREAST FEEDING [None]
  - DRUG EXPOSURE DURING PREGNANCY [None]
